FAERS Safety Report 14312024 (Version 1)
Quarter: 2017Q4

REPORT INFORMATION
  Report Type: Spontaneous
  Country: IR (occurrence: IR)
  Receive Date: 20171221
  Receipt Date: 20171221
  Transmission Date: 20180321
  Serious: Yes (Other)
  Sender: FDA-Public Use
  Company Number: IR-ALEMBIC PHARMACUETICALS LIMITED-2017SCAL001004

PATIENT

DRUGS (8)
  1. QUETIAPINE FUMARATE. [Suspect]
     Active Substance: QUETIAPINE FUMARATE
     Dosage: 300 MG AFTER 2 WEEKS (100 MG AT NOON AND 200 MG AT NIGHT)
  2. QUETIAPINE FUMARATE. [Suspect]
     Active Substance: QUETIAPINE FUMARATE
     Dosage: 300 MG, QD (50 MG IN MORNING, 100 MG AT NOON, 150 MG AT NIGHT)
  3. PERPHENAZINE. [Suspect]
     Active Substance: PERPHENAZINE
     Indication: BIPOLAR I DISORDER
     Dosage: 24 MG, QD
  4. TRIHEXYPHENIDYL [Suspect]
     Active Substance: TRIHEXYPHENIDYL
     Indication: BIPOLAR I DISORDER
     Dosage: 6 MG, QD
  5. RISPERIDONE. [Suspect]
     Active Substance: RISPERIDONE
     Indication: BIPOLAR I DISORDER
     Dosage: 2 MG, QD
  6. QUETIAPINE FUMARATE. [Suspect]
     Active Substance: QUETIAPINE FUMARATE
     Indication: BIPOLAR I DISORDER
     Dosage: 12.5 MG, QD TAKEN AT NIGHT
  7. QUETIAPINE FUMARATE. [Suspect]
     Active Substance: QUETIAPINE FUMARATE
     Dosage: 25 MG, QD AFTER 3 DAYS
  8. LITHIUM CARBONATE. [Suspect]
     Active Substance: LITHIUM CARBONATE
     Indication: BIPOLAR I DISORDER
     Dosage: 900 MG, QD
     Route: 065

REACTIONS (3)
  - Enuresis [Recovering/Resolving]
  - Delirium [Recovering/Resolving]
  - Urinary incontinence [Recovering/Resolving]
